FAERS Safety Report 17733586 (Version 2)
Quarter: 2020Q2

REPORT INFORMATION
  Report Type: Report from Study
  Country: FR (occurrence: FR)
  Receive Date: 20200501
  Receipt Date: 20200626
  Transmission Date: 20200714
  Serious: Yes (Life-Threatening, Hospitalization)
  Sender: FDA-Public Use
  Company Number: FR-CLOVIS ONCOLOGY-CLO-2020-000776

PATIENT

DRUGS (4)
  1. ATEZOLIZUMAB. [Suspect]
     Active Substance: ATEZOLIZUMAB
     Indication: NEOPLASM MALIGNANT
     Dosage: 1200 MG, UNK
     Route: 042
     Dates: start: 20200317, end: 20200408
  2. RUCAPARIB [Suspect]
     Active Substance: RUCAPARIB
     Indication: NEOPLASM MALIGNANT
     Dosage: 1200 MG, UNK
     Route: 048
     Dates: start: 20200225, end: 20200417
  3. ATEZOLIZUMAB. [Suspect]
     Active Substance: ATEZOLIZUMAB
     Dosage: 1200 MG, UNK
     Route: 042
     Dates: start: 20200428
  4. RUCAPARIB [Suspect]
     Active Substance: RUCAPARIB
     Dosage: 400 MG, BID
     Route: 048
     Dates: start: 20200422

REACTIONS (1)
  - Anaemia [Recovered/Resolved]

NARRATIVE: CASE EVENT DATE: 20200418
